FAERS Safety Report 18200766 (Version 4)
Quarter: 2022Q4

REPORT INFORMATION
  Report Type: Spontaneous
  Country: ES (occurrence: ES)
  Receive Date: 20200827
  Receipt Date: 20221227
  Transmission Date: 20230113
  Serious: Yes (Life-Threatening, Hospitalization)
  Sender: FDA-Public Use
  Company Number: ES-TEVA-2020-ES-1817938

PATIENT
  Age: 55 Year
  Sex: Male
  Weight: 70 kg

DRUGS (4)
  1. ENALAPRIL [Interacting]
     Active Substance: ENALAPRIL
     Indication: Hypertension
     Route: 065
  2. ICATIBANT [Suspect]
     Active Substance: ICATIBANT ACETATE
     Indication: Angioedema
     Route: 058
  3. ALTEPLASE [Interacting]
     Active Substance: ALTEPLASE
     Indication: Aphasia
     Dosage: ADJUSTED FOR A WEIGHT OF 70KG
     Route: 065
  4. HYDROCHLOROTHIAZIDE [Concomitant]
     Active Substance: HYDROCHLOROTHIAZIDE
     Indication: Hypertension

REACTIONS (3)
  - Angioedema [Recovered/Resolved]
  - Drug interaction [Unknown]
  - Off label use [Unknown]
